FAERS Safety Report 15451263 (Version 2)
Quarter: 2018Q4

REPORT INFORMATION
  Report Type: Spontaneous
  Country: US (occurrence: US)
  Receive Date: 20181001
  Receipt Date: 20181113
  Transmission Date: 20190204
  Serious: Yes (Hospitalization)
  Sender: FDA-Public Use
  Company Number: US-CELGENEUS-USA-20180906192

PATIENT
  Age: 81 Year
  Sex: Female
  Weight: 70 kg

DRUGS (30)
  1. ACETYLSALICYLIC ACID [Concomitant]
     Active Substance: ASPIRIN
     Indication: CORONARY ARTERY DISEASE
     Dosage: 8 MILLIGRAM
     Route: 048
     Dates: start: 2015
  2. VENETOCLAX. [Concomitant]
     Active Substance: VENETOCLAX
     Dosage: 400 MILLIGRAM
     Route: 048
  3. SENNA ALEXANDRINA [Concomitant]
     Active Substance: SENNA LEAF
     Indication: CONSTIPATION
     Dosage: 2 TABLET
     Route: 048
     Dates: start: 20180428
  4. CEFADROXIL. [Concomitant]
     Active Substance: CEFADROXIL
     Indication: CELLULITIS
     Dosage: 1000 MILLIGRAM
     Route: 048
     Dates: start: 20180629
  5. AZACITIDINE. [Suspect]
     Active Substance: AZACITIDINE
     Indication: ACUTE MYELOID LEUKAEMIA
     Dosage: 75 MILLIGRAM/SQ. METER
     Route: 041
     Dates: start: 20180426
  6. ACETYLCYSTEINE. [Concomitant]
     Active Substance: ACETYLCYSTEINE
     Indication: CORONARY ARTERY DISEASE
     Dosage: 8 MILLIGRAM
     Route: 065
     Dates: start: 2015
  7. OXYGEN. [Concomitant]
     Active Substance: OXYGEN
     Indication: CHRONIC OBSTRUCTIVE PULMONARY DISEASE
     Dosage: 3 LITERS
     Route: 055
     Dates: start: 2015
  8. BACITRACIN. [Concomitant]
     Active Substance: BACITRACIN
     Indication: RASH
     Dosage: 1 APPLICATION
     Route: 061
     Dates: start: 20180426
  9. FLUTICASONE. [Concomitant]
     Active Substance: FLUTICASONE
     Indication: CHRONIC OBSTRUCTIVE PULMONARY DISEASE
     Dosage: 110 MILLIGRAM
     Route: 045
     Dates: start: 20180426
  10. ONDANSETRON [Concomitant]
     Active Substance: ONDANSETRON
     Indication: PROPHYLAXIS OF NAUSEA AND VOMITING
     Dosage: 16 MILLIGRAM
     Route: 048
     Dates: start: 20180427
  11. HYDROCORTISONE. [Concomitant]
     Active Substance: HYDROCORTISONE
     Indication: PRURITUS
     Dosage: 1 APPLICATION
     Route: 061
     Dates: start: 20180511
  12. BENZOCAINE. [Concomitant]
     Active Substance: BENZOCAINE
     Indication: ORAL PAIN
     Dosage: 1 LOZENGE
     Route: 048
     Dates: start: 20180519
  13. ALLOPURINOL. [Concomitant]
     Active Substance: ALLOPURINOL
     Indication: PROPHYLAXIS
     Dosage: 300 MILLIGRAM
     Route: 048
     Dates: start: 20180426, end: 20180501
  14. UMECLIDINIUM W/VILANTEROL [Concomitant]
     Indication: CHRONIC OBSTRUCTIVE PULMONARY DISEASE
     Dosage: 1 PUFF
     Route: 055
     Dates: start: 20180426
  15. BENZOCAINE. [Concomitant]
     Active Substance: BENZOCAINE
     Indication: ULCER
  16. OMEPRAZOLE. [Concomitant]
     Active Substance: OMEPRAZOLE
     Indication: PROPHYLAXIS
     Dosage: 40 MILLIGRAM
     Route: 048
     Dates: start: 20180514
  17. VENETOCLAX. [Concomitant]
     Active Substance: VENETOCLAX
     Dosage: 200 MILLIGRAM
     Route: 048
     Dates: start: 20180427, end: 20180427
  18. CYANOCOBALAMIN. [Concomitant]
     Active Substance: CYANOCOBALAMIN
     Indication: VITAMIN SUPPLEMENTATION
     Dosage: 1000 MILLIGRAM
     Route: 048
     Dates: start: 20180426
  19. NYSTATIN. [Concomitant]
     Active Substance: NYSTATIN
     Indication: INFECTION PROPHYLAXIS
     Dosage: 500000 UNITS/ML
     Route: 048
     Dates: start: 20180514
  20. ACETYLCYSTEINE. [Concomitant]
     Active Substance: ACETYLCYSTEINE
     Indication: CHRONIC OBSTRUCTIVE PULMONARY DISEASE
     Dosage: 600 MILLIGRAM
     Route: 048
     Dates: start: 201707
  21. CALCIUM CARBONATE. [Concomitant]
     Active Substance: CALCIUM CARBONATE
     Indication: GASTROOESOPHAGEAL REFLUX DISEASE
     Dosage: 500 MILLIGRAM
     Route: 048
     Dates: start: 20180426
  22. MAGNESIUM HYDROXIDE. [Concomitant]
     Active Substance: MAGNESIUM HYDROXIDE
     Indication: CONSTIPATION PROPHYLAXIS
     Dosage: 30 MILLILITER
     Route: 048
     Dates: start: 20180430
  23. ACYCLOVIR. [Concomitant]
     Active Substance: ACYCLOVIR
     Indication: INFECTION PROPHYLAXIS
     Dosage: 800 MILLIGRAM
     Route: 048
     Dates: start: 20180502
  24. VENETOCLAX. [Concomitant]
     Active Substance: VENETOCLAX
     Indication: ACUTE MYELOID LEUKAEMIA
     Dosage: 100 MILLIGRAM
     Route: 048
     Dates: start: 20180426, end: 20180426
  25. VENETOCLAX. [Concomitant]
     Active Substance: VENETOCLAX
     Dosage: 400 MILLIGRAM
     Route: 048
     Dates: start: 20180428, end: 20180428
  26. SODIUM CHLORIDE. [Concomitant]
     Active Substance: SODIUM CHLORIDE
     Indication: PROPHYLAXIS
     Dosage: 1960 MILLILITER
     Route: 041
     Dates: start: 20180426, end: 20180502
  27. METOPROLOL. [Concomitant]
     Active Substance: METOPROLOL
     Indication: HYPERTENSION
     Dosage: 12.5 MILLIGRAM
     Route: 048
     Dates: start: 2014
  28. SERTRALINE HYDROCHLORIDE. [Concomitant]
     Active Substance: SERTRALINE HYDROCHLORIDE
     Indication: DEPRESSION
     Dosage: 50 MILLIGRAM
     Route: 048
     Dates: start: 2014
  29. VALSARTAN. [Concomitant]
     Active Substance: VALSARTAN
     Indication: HYPERTENSION
     Dosage: 80 MILLIGRAM
     Route: 048
     Dates: start: 2014
  30. CEFADROXIL. [Concomitant]
     Active Substance: CEFADROXIL
     Indication: BACTERIAL DISEASE CARRIER

REACTIONS (1)
  - Myocardial infarction [Recovered/Resolved]

NARRATIVE: CASE EVENT DATE: 20180905
